FAERS Safety Report 9491850 (Version 1)
Quarter: 2013Q3

REPORT INFORMATION
  Report Type: Not Available
  Country: US (occurrence: US)
  Receive Date: 20130919
  Receipt Date: 20130919
  Transmission Date: 20140515
  Serious: Yes (Other)
  Sender: FDA-Public Use
  Company Number: US-LUNDBECK-DKLU1083703

PATIENT
  Age: 1 Year
  Sex: Female

DRUGS (7)
  1. SABRIL (TABLET) [Suspect]
     Indication: INFANTILE SPASMS
     Dosage: 500 MG BID, THEN TITRATED TO AN ADDITIONAL 500 MG EVERY WEEK UNTIL A MAXIMUM DOSE OF 2GRAMS WAS REAC
     Route: 048
     Dates: start: 20110601
  2. SABRIL (TABLET) [Suspect]
     Route: 048
     Dates: start: 20120607
  3. SABRIL (TABLET) [Suspect]
     Route: 048
     Dates: start: 20120607
  4. SABRIL (TABLET) [Suspect]
     Route: 048
  5. SABRIL (TABLET) [Suspect]
     Route: 048
  6. TOPAMAX [Concomitant]
     Indication: PRODUCT USED FOR UNKNOWN INDICATION
  7. PHENOBARBITAL [Concomitant]
     Indication: PRODUCT USED FOR UNKNOWN INDICATION

REACTIONS (2)
  - Dyskinesia [Unknown]
  - Tremor [Unknown]
